FAERS Safety Report 13825203 (Version 2)
Quarter: 2017Q3

REPORT INFORMATION
  Report Type: Report from Study
  Country: US (occurrence: US)
  Receive Date: 20170802
  Receipt Date: 20170821
  Transmission Date: 20171127
  Serious: Yes (Death, Hospitalization)
  Sender: FDA-Public Use
  Company Number: US-JNJFOC-20170801254

PATIENT
  Age: 83 Year
  Sex: Female

DRUGS (8)
  1. MULTAQ [Concomitant]
     Active Substance: DRONEDARONE
  2. GEMZAR [Concomitant]
     Active Substance: GEMCITABINE HYDROCHLORIDE
  3. PROTONIX [Concomitant]
     Active Substance: PANTOPRAZOLE SODIUM
  4. IMBRUVICA [Suspect]
     Active Substance: IBRUTINIB
     Indication: CHRONIC LYMPHOCYTIC LEUKAEMIA
     Route: 048
     Dates: start: 20170719, end: 20170721
  5. PROMETHAZINE [Concomitant]
     Active Substance: PROMETHAZINE\PROMETHAZINE HYDROCHLORIDE
  6. RITUXAN [Concomitant]
     Active Substance: RITUXIMAB
  7. CENTRUM SILVER [Concomitant]
     Active Substance: MINERALS\VITAMINS
  8. NEULASTA [Concomitant]
     Active Substance: PEGFILGRASTIM

REACTIONS (4)
  - Incorrect dose administered [Unknown]
  - Off label use [Unknown]
  - Intestinal obstruction [Fatal]
  - Disease progression [Fatal]

NARRATIVE: CASE EVENT DATE: 201707
